FAERS Safety Report 4353199-X (Version None)
Quarter: 2004Q2

REPORT INFORMATION
  Report Type: 
  Country: None (occurrence: None)
  Receive Date: 20040503
  Receipt Date: 20040503
  Transmission Date: 20050107
  Serious: Yes (Life-Threatening, Hospitalization, Other)
  Sender: FDA-Public Use
  Company Number: None

PATIENT
  Age: 43 Year
  Sex: Female
  Weight: 61.2356 kg

DRUGS (8)
  1. GEODON [Suspect]
     Indication: BORDERLINE PERSONALITY DISORDER
     Dosage: 20 MG QD THEN 10 MG QD, THEN 40 MG BID
     Dates: start: 20030510, end: 20030530
  2. GEODON [Suspect]
     Indication: INTENTIONAL OVERDOSE
     Dosage: 20 MG QD THEN 10 MG QD, THEN 40 MG BID
     Dates: start: 20030510, end: 20030530
  3. GEODON [Suspect]
     Indication: SUICIDE ATTEMPT
     Dosage: 20 MG QD THEN 10 MG QD, THEN 40 MG BID
     Dates: start: 20030510, end: 20030530
  4. EFFEXOR [Concomitant]
  5. CELEBREX [Concomitant]
  6. ZOMIG [Concomitant]
  7. IMITREX [Concomitant]
  8. DARVOCET [Concomitant]

REACTIONS (18)
  - ANURIA [None]
  - ANXIETY [None]
  - ATRIOVENTRICULAR BLOCK SECOND DEGREE [None]
  - BLADDER DISORDER [None]
  - BLOOD PRESSURE INCREASED [None]
  - CARDIAC DISORDER [None]
  - CONVULSION [None]
  - DYSKINESIA [None]
  - DYSPNOEA [None]
  - HEADACHE [None]
  - HEART RATE INCREASED [None]
  - MEDICATION ERROR [None]
  - MENTAL DISORDER [None]
  - PARANOIA [None]
  - PAROSMIA [None]
  - SPEECH DISORDER [None]
  - TREMOR [None]
  - VISUAL DISTURBANCE [None]
